FAERS Safety Report 13061277 (Version 2)
Quarter: 2017Q2

REPORT INFORMATION
  Report Type: Spontaneous
  Country: IT (occurrence: IT)
  Receive Date: 20161226
  Receipt Date: 20170501
  Transmission Date: 20170830
  Serious: Yes (Other)
  Sender: FDA-Public Use
  Company Number: IT-ACCORD-038615

PATIENT
  Age: 64 Year
  Sex: Male
  Weight: 85 kg

DRUGS (5)
  1. ENALAPRIL [Concomitant]
     Active Substance: ENALAPRIL
  2. ERBITUX [Suspect]
     Active Substance: CETUXIMAB
     Indication: ADENOCARCINOMA OF COLON
     Route: 042
     Dates: start: 20160208
  3. IRINOTECAN [Suspect]
     Active Substance: IRINOTECAN
     Indication: ADENOCARCINOMA OF COLON
     Dosage: ALSO RECEIVED 260 MG
     Route: 042
     Dates: start: 20160208
  4. LEDERFOLIN [Concomitant]
     Active Substance: LEUCOVORIN CALCIUM
     Indication: METASTASES TO LIVER
     Route: 042
     Dates: start: 20160208, end: 20160208
  5. FLUOROURACIL. [Suspect]
     Active Substance: FLUOROURACIL
     Indication: METASTASES TO LIVER
     Dosage: ALSO RECEIVED IV BOLUS AT THE DOSE OF 800 MG CYCLICAL.??HE UNDERWENT THE FOLFIRI, DAY 01, CYCLE 01
     Route: 042
     Dates: start: 20160208, end: 20160208

REACTIONS (9)
  - Stomatitis [Recovering/Resolving]
  - Thrombocytopenia [Recovering/Resolving]
  - Nail toxicity [Recovering/Resolving]
  - Gastrointestinal motility disorder [Recovering/Resolving]
  - Nausea [Recovered/Resolved]
  - Anaemia [Recovering/Resolving]
  - Abdominal pain [Recovered/Resolved]
  - Infusion related reaction [Recovered/Resolved]
  - Off label use [Unknown]

NARRATIVE: CASE EVENT DATE: 20160208
